FAERS Safety Report 9543615 (Version 1)
Quarter: 2013Q3

REPORT INFORMATION
  Report Type: Spontaneous
  Country: US (occurrence: US)
  Receive Date: 20130923
  Receipt Date: 20130923
  Transmission Date: 20140515
  Serious: Yes (Hospitalization, Other)
  Sender: FDA-Public Use
  Company Number: US-TEVA-433247USA

PATIENT
  Age: 64 Year
  Sex: Female
  Weight: 88 kg

DRUGS (9)
  1. PROPOFOL [Suspect]
     Indication: INDUCTION OF ANAESTHESIA
     Dosage: 2.3 MG/KG
     Route: 065
  2. RIFAMPICIN [Interacting]
     Indication: INFECTION PROPHYLAXIS
     Dosage: 600MG; FIRST DOSE NIGHT BEFORE, THEN 2ND DOSE 2H BEFORE SURGERY
     Route: 048
  3. ATORVASTATIN [Concomitant]
     Dosage: 10 MILLIGRAM DAILY;
     Route: 065
  4. ESOMEPRAZOLE [Concomitant]
     Dosage: 40 MILLIGRAM DAILY;
     Route: 065
  5. NAPROXEN [Concomitant]
     Dosage: 1000 MILLIGRAM DAILY;
     Route: 065
  6. PROCET [Concomitant]
     Indication: PAIN
     Dosage: 5-325MG, AS NEEDED
     Route: 065
  7. MIDAZOLAM [Concomitant]
     Indication: PREMEDICATION
     Route: 065
  8. FENTANYL [Concomitant]
     Indication: PREMEDICATION
     Dosage: 1.88 MICROG/KG
     Route: 042
  9. SUXAMETHONIUM CHLORIDE [Concomitant]
     Indication: INDUCTION OF ANAESTHESIA
     Dosage: 1.1 MG/KG
     Route: 065

REACTIONS (2)
  - Hypotension [Recovered/Resolved]
  - Drug interaction [Recovered/Resolved]
